FAERS Safety Report 6524285-0 (Version None)
Quarter: 2009Q4

REPORT INFORMATION
  Report Type: 
  Country: None (occurrence: None)
  Receive Date: 20091231
  Receipt Date: 20091223
  Transmission Date: 20100525
  Serious: Yes (Other)
  Sender: FDA-Public Use
  Company Number: US-GENENTECH-296339

PATIENT
  Sex: Female
  Weight: 37.65 kg

DRUGS (2)
  1. SOMATROPIN [Suspect]
     Indication: TURNER'S SYNDROME
     Dosage: 3.6 MG, 7/WEEK
     Route: 058
     Dates: start: 20071026
  2. LEVOTHYROXINE SODIUM [Concomitant]
     Indication: DRUG USE FOR UNKNOWN INDICATION
     Dosage: 88 A?G, QD
     Dates: start: 20050101

REACTIONS (1)
  - ASTROCYTOMA [None]
